FAERS Safety Report 16595396 (Version 1)
Quarter: 2019Q3

REPORT INFORMATION
  Report Type: Report from Study
  Country: None (occurrence: TR)
  Receive Date: 20190719
  Receipt Date: 20190719
  Transmission Date: 20191004
  Serious: Yes (Death)
  Sender: FDA-Public Use
  Company Number: TR-ABBVIE-19K-161-2859216-00

PATIENT
  Sex: Male
  Weight: 49 kg

DRUGS (1)
  1. DUODOPA [Suspect]
     Active Substance: CARBIDOPA\LEVODOPA
     Indication: PARKINSON^S DISEASE
     Dosage: MORNING: 9.0 ML, CONTINOUS: 2.5 ML, EXTRA: 1.0 ML
     Route: 050
     Dates: start: 20181112

REACTIONS (1)
  - Lung infection [Fatal]
